FAERS Safety Report 26126461 (Version 1)
Quarter: 2025Q4

REPORT INFORMATION
  Report Type: Spontaneous
  Country: CN (occurrence: CN)
  Receive Date: 20251205
  Receipt Date: 20251205
  Transmission Date: 20260119
  Serious: Yes (Hospitalization, Other)
  Sender: INSUD PHARMA
  Company Number: CN-INSUD PHARMA-2511CN10074

PATIENT

DRUGS (13)
  1. OMEPRAZOLE [Interacting]
     Active Substance: OMEPRAZOLE
     Indication: Colorectal cancer
     Dosage: 40 MILLIGRAM, QD
     Route: 042
     Dates: start: 20220603, end: 20220604
  2. OXALIPLATIN [Interacting]
     Active Substance: OXALIPLATIN
     Indication: Colorectal cancer
     Dosage: 150 MILLIGRAM
     Route: 042
     Dates: start: 20220603, end: 20220603
  3. FLUOROURACIL\LEUCOVORIN CALCIUM\OXALIPLATIN [Concomitant]
     Active Substance: FLUOROURACIL\LEUCOVORIN CALCIUM\OXALIPLATIN
     Indication: Chemotherapy
     Dosage: UNK
     Dates: start: 20211222
  4. FLUOROURACIL\LEUCOVORIN CALCIUM\OXALIPLATIN [Concomitant]
     Active Substance: FLUOROURACIL\LEUCOVORIN CALCIUM\OXALIPLATIN
     Indication: Adjuvant therapy
  5. BEVACIZUMAB [Concomitant]
     Active Substance: BEVACIZUMAB
     Indication: Chemotherapy
     Dosage: UNK
     Dates: start: 20211222
  6. BEVACIZUMAB [Concomitant]
     Active Substance: BEVACIZUMAB
     Indication: Adjuvant therapy
     Dosage: 150 MILLIGRAM
     Route: 042
     Dates: start: 20220604, end: 20220604
  7. METHYLPREDNISOLONE [Concomitant]
     Active Substance: METHYLPREDNISOLONE
     Dosage: 40 MILLIGRAM
     Route: 042
     Dates: start: 20220603, end: 20220603
  8. LEUCOVORIN CALCIUM [Concomitant]
     Active Substance: LEUCOVORIN CALCIUM
     Dosage: 700 MILLIGRAM
     Route: 042
     Dates: start: 20220603, end: 20220603
  9. FLUOROURACIL [Concomitant]
     Active Substance: FLUOROURACIL
     Dosage: 0.75 GRAM
     Route: 042
     Dates: start: 20220603, end: 20220603
  10. FLUOROURACIL [Concomitant]
     Active Substance: FLUOROURACIL
     Dosage: 0.75 G ST IV + 4 G ST CIV46H
     Route: 042
     Dates: start: 20220603, end: 20220604
  11. VITAMIN B6 [Concomitant]
     Active Substance: PYRIDOXINE HYDROCHLORIDE
     Dosage: 0.2 GRAM, QD
     Route: 042
     Dates: start: 20220603, end: 20220604
  12. VITAMIN C [Concomitant]
     Active Substance: ASCORBIC ACID
     Dosage: 1 GRAM, QD
     Route: 042
     Dates: start: 20220603, end: 20220604
  13. GRANISETRON [Concomitant]
     Active Substance: GRANISETRON
     Dosage: 3 MILLIGRAM, QD
     Route: 042
     Dates: start: 20220603, end: 20220604

REACTIONS (7)
  - Insulin autoimmune syndrome [Recovered/Resolved]
  - Hypoglycaemia [Recovered/Resolved]
  - Mental status changes [Recovered/Resolved]
  - Palpitations [Recovered/Resolved]
  - Hyperhidrosis [Recovered/Resolved]
  - Cold sweat [Recovered/Resolved]
  - Drug interaction [Recovered/Resolved]

NARRATIVE: CASE EVENT DATE: 20220601
